FAERS Safety Report 4317134-2 (Version None)
Quarter: 2004Q1

REPORT INFORMATION
  Report Type: 
  Country: None (occurrence: None)
  Receive Date: 20040312
  Receipt Date: 20040227
  Transmission Date: 20041129
  Serious: Yes (Other)
  Sender: FDA-Public Use
  Company Number: 2004013677

PATIENT
  Age: 41 Year
  Sex: Male
  Weight: 54.4316 kg

DRUGS (1)
  1. REACTINE (CETIRIZINE) [Suspect]
     Indication: HYPERSENSITIVITY
     Dosage: EVERY DAY OR EVERY 3-4 DAYS
     Dates: start: 20031201

REACTIONS (3)
  - ANXIETY [None]
  - DRUG DEPENDENCE [None]
  - MULTIPLE ALLERGIES [None]
